FAERS Safety Report 13402481 (Version 1)
Quarter: 2017Q2

REPORT INFORMATION
  Report Type: Spontaneous
  Country: FI (occurrence: FI)
  Receive Date: 20170404
  Receipt Date: 20170404
  Transmission Date: 20170830
  Serious: Yes (Other)
  Sender: FDA-Public Use
  Company Number: FI-ELI_LILLY_AND_COMPANY-FI201703012726

PATIENT
  Sex: Male

DRUGS (4)
  1. ZYPADHERA [Suspect]
     Active Substance: OLANZAPINE PAMOATE
     Indication: SCHIZOPHRENIA
     Dosage: 300 MG, 2/M
     Route: 030
     Dates: start: 2012
  2. MELATONIN                          /07129401/ [Concomitant]
     Dosage: 3 MG, UNKNOWN
  3. METFORMIN [Concomitant]
     Active Substance: METFORMIN HYDROCHLORIDE
     Dosage: 1X2
  4. STELLA                             /00013303/ [Concomitant]
     Dosage: 20 MG, UNKNOWN
     Route: 065

REACTIONS (6)
  - Asthenia [Unknown]
  - Feeling drunk [Unknown]
  - Fatigue [Unknown]
  - Blood pressure increased [Unknown]
  - Dizziness [Unknown]
  - Gait disturbance [Unknown]

NARRATIVE: CASE EVENT DATE: 20170323
